FAERS Safety Report 7686400-5 (Version None)
Quarter: 2011Q3

REPORT INFORMATION
  Report Type: 
  Country: None (occurrence: None)
  Receive Date: 20110816
  Receipt Date: 20110803
  Transmission Date: 20111222
  Serious: Yes (Other)
  Sender: FDA-Public Use
  Company Number: JP-ELI_LILLY_AND_COMPANY-JP201108003076

PATIENT
  Age: 45 Year

DRUGS (1)
  1. CYMBALTA [Suspect]
     Dosage: UNK, BID
     Route: 048

REACTIONS (2)
  - DEPERSONALISATION [None]
  - OVERDOSE [None]
